FAERS Safety Report 14651442 (Version 1)
Quarter: 2018Q1

REPORT INFORMATION
  Report Type: Spontaneous
  Country: FR (occurrence: FR)
  Receive Date: 20180316
  Receipt Date: 20180316
  Transmission Date: 20180509
  Serious: Yes (Hospitalization)
  Sender: FDA-Public Use
  Company Number: FR-CONCORDIA PHARMACEUTICALS INC.-GSH201803-000964

PATIENT
  Age: 58 Year
  Sex: Female

DRUGS (1)
  1. PLAQUENIL [Suspect]
     Active Substance: HYDROXYCHLOROQUINE SULFATE
     Indication: SJOGREN^S SYNDROME
     Route: 048
     Dates: start: 20170901, end: 20170929

REACTIONS (3)
  - Dermatitis exfoliative generalised [Recovering/Resolving]
  - Pruritus [Recovering/Resolving]
  - Purpura [Recovering/Resolving]

NARRATIVE: CASE EVENT DATE: 20171007
